FAERS Safety Report 7916739-7 (Version None)
Quarter: 2011Q4

REPORT INFORMATION
  Report Type: 
  Country: None (occurrence: None)
  Receive Date: 20111114
  Receipt Date: 20111107
  Transmission Date: 20120403
  Serious: Yes (Hospitalization, Other)
  Sender: FDA-Public Use
  Company Number: 2010SP064697

PATIENT
  Age: 20 Year
  Sex: Female
  Weight: 103.4201 kg

DRUGS (3)
  1. NUVARING [Suspect]
     Indication: CONTRACEPTION
     Dates: start: 20031106, end: 20081217
  2. NUVARING [Suspect]
     Indication: MENSTRUATION IRREGULAR
     Dates: start: 20031106, end: 20081217
  3. VITAMIN TAB [Concomitant]

REACTIONS (45)
  - CELLULITIS [None]
  - BACK PAIN [None]
  - PULMONARY EMBOLISM [None]
  - CHLAMYDIAL INFECTION [None]
  - VOMITING [None]
  - PLEURITIC PAIN [None]
  - CONCUSSION [None]
  - TENDON DISORDER [None]
  - MULTIPLE INJURIES [None]
  - TACHYCARDIA [None]
  - ACNE [None]
  - ANXIETY [None]
  - OTITIS MEDIA [None]
  - JOINT INJURY [None]
  - PAIN IN EXTREMITY [None]
  - NECK PAIN [None]
  - FLANK PAIN [None]
  - DYSPNOEA [None]
  - PLEURAL EFFUSION [None]
  - EAR PAIN [None]
  - POLYCYSTIC OVARIES [None]
  - MUSCLE STRAIN [None]
  - PAIN [None]
  - WHITE BLOOD CELL COUNT INCREASED [None]
  - HAEMOPTYSIS [None]
  - GENE MUTATION [None]
  - THROMBOSIS [None]
  - ARTHROPOD BITE [None]
  - ASTHMA [None]
  - DIZZINESS [None]
  - LEUKOCYTOSIS [None]
  - LACERATION [None]
  - BRONCHITIS [None]
  - PULMONARY INFARCTION [None]
  - LIPOMA [None]
  - TENDONITIS [None]
  - MENSTRUATION IRREGULAR [None]
  - STRESS [None]
  - HYPERCOAGULATION [None]
  - NAUSEA [None]
  - UPPER RESPIRATORY TRACT INFECTION [None]
  - HIRSUTISM [None]
  - ABSCESS [None]
  - TONSILLAR HYPERTROPHY [None]
  - ARTHRALGIA [None]
